FAERS Safety Report 4403943-8 (Version None)
Quarter: 2004Q2

REPORT INFORMATION
  Report Type: 
  Country: None (occurrence: None)
  Receive Date: 20040618
  Receipt Date: 20040406
  Transmission Date: 20050107
  Serious: No
  Sender: FDA-Public Use
  Company Number: US-JNJFOC-20040401950

PATIENT
  Age: 33 Year
  Sex: Female
  Weight: 47.1741 kg

DRUGS (5)
  1. ORTHO EVRA [Suspect]
     Indication: CONTRACEPTION
     Dosage: 1 DOSE(S), 3 IN 4 WEEK, TRANSDERMAL
     Route: 062
     Dates: start: 20040404
  2. METHADONE (METHADONE) [Concomitant]
  3. AMBIEN [Concomitant]
  4. PROZAC [Concomitant]
  5. GABITRIL [Concomitant]

REACTIONS (5)
  - ASTHENIA [None]
  - DISSOCIATION [None]
  - DIZZINESS [None]
  - FALL [None]
  - HYPOAESTHESIA [None]
